FAERS Safety Report 9184739 (Version 2)
Quarter: 2013Q1

REPORT INFORMATION
  Report Type: Spontaneous
  Country: US (occurrence: US)
  Receive Date: 20130324
  Receipt Date: 20130324
  Transmission Date: 20140127
  Serious: Yes (Death)
  Sender: FDA-Public Use
  Company Number: US-PFIZER INC-2013SP000364

PATIENT
  Age: 43 Year
  Sex: Male

DRUGS (3)
  1. IFOSFAMIDE [Suspect]
     Dosage: UNK
     Route: 048
  2. IFOSFAMIDE [Suspect]
     Dosage: UNK
     Route: 051
  3. ACETAMINOPHEN [Suspect]
     Dosage: UNK

REACTIONS (2)
  - Adverse reaction [Fatal]
  - Poisoning deliberate [None]
